FAERS Safety Report 4400831-8 (Version None)
Quarter: 2004Q3

REPORT INFORMATION
  Report Type: 
  Country: None (occurrence: None)
  Receive Date: 20040907
  Receipt Date: 20030626
  Transmission Date: 20050211
  Serious: No
  Sender: FDA-Public Use
  Company Number: US-BRISTOL-MYERS SQUIBB COMPANY-12311908

PATIENT
  Age: 65 Year
  Sex: Female
  Weight: 51 kg

DRUGS (11)
  1. COUMADIN [Suspect]
     Indication: ATRIAL FIBRILLATION
     Dosage: DOSE: 5MG/4DAYS ALTERNATING WITH 2.5MG/3 DAYS
     Route: 048
  2. VASOTEC [Concomitant]
  3. LEVOXYL [Concomitant]
  4. DIGOXIN [Concomitant]
  5. LUTEIN [Concomitant]
  6. CENTRUM [Concomitant]
  7. VITAMIN C AND E [Concomitant]
  8. RESTORIL [Concomitant]
  9. VALIUM [Concomitant]
  10. PRAVACHOL [Concomitant]
  11. MAXZIDE [Concomitant]

REACTIONS (1)
  - INTERNATIONAL NORMALISED RATIO ABNORMAL [None]
